FAERS Safety Report 8785238 (Version 1)
Quarter: 2012Q4

REPORT INFORMATION
  Report Type: 
  Country: US (occurrence: US)
  Receive Date: 20120914
  Receipt Date: 20120914
  Transmission Date: 20130627
  Serious: No
  Sender: FDA-Public Use
  Company Number: US-B.I. PHARMACEUTICALS,INC./RIDGEFIELD-2012-BP-22230BP

PATIENT
  Age: 59 Year
  Sex: Male
  Weight: 68 kg

DRUGS (8)
  1. SPIRIVA [Suspect]
     Indication: CHRONIC OBSTRUCTIVE PULMONARY DISEASE
     Dosage: 18 mcg
     Route: 055
     Dates: start: 20120706
  2. ISOSORBIDE [Concomitant]
     Indication: CARDIAC DISORDER
     Dosage: 30 mg
     Route: 048
     Dates: start: 201109
  3. CLOPIDOGREL [Concomitant]
     Indication: CARDIOVASCULAR INSUFFICIENCY
     Dosage: 75 mg
     Route: 048
     Dates: start: 2008
  4. MULTIVITAMAN [Concomitant]
     Route: 048
     Dates: start: 201109
  5. LEBOCETIRIZIEN [Concomitant]
     Indication: HYPERSENSITIVITY
     Dosage: 5 mg
     Route: 048
     Dates: start: 20120706
  6. ATENOLOL- CHLORTHALIDONE [Concomitant]
     Indication: HEART RATE INCREASED
     Route: 048
     Dates: start: 2008
  7. ATENOLOL- CHLORTHALIDONE [Concomitant]
     Indication: HYPERTENSION
  8. OMEGA 3 [Concomitant]
     Route: 048
     Dates: start: 201109

REACTIONS (2)
  - Glossodynia [Not Recovered/Not Resolved]
  - Tongue disorder [Not Recovered/Not Resolved]
